FAERS Safety Report 25087190 (Version 1)
Quarter: 2025Q1

REPORT INFORMATION
  Report Type: Spontaneous
  Country: US (occurrence: US)
  Receive Date: 20250318
  Receipt Date: 20250318
  Transmission Date: 20250408
  Serious: Yes (Other)
  Sender: AMGEN
  Company Number: US-AMGEN-USASP2025049636

PATIENT
  Sex: Female

DRUGS (3)
  1. TEPEZZA [Suspect]
     Active Substance: TEPROTUMUMAB-TRBW
     Indication: Endocrine ophthalmopathy
     Dosage: 10 MILLIGRAM/KILOGRAM, Q3WK
     Route: 040
     Dates: start: 20230522
  2. TEPEZZA [Suspect]
     Active Substance: TEPROTUMUMAB-TRBW
     Dosage: 20 MILLIGRAM/KILOGRAM, Q3WK (THIRD INFUSION)
     Route: 040
  3. TEPEZZA [Suspect]
     Active Substance: TEPROTUMUMAB-TRBW
     Dosage: 20 MILLIGRAM/KILOGRAM, Q3WK (SIXTH/LAST INFUSION)
     Route: 040
     Dates: start: 20230908, end: 20230908

REACTIONS (6)
  - Deafness permanent [Not Recovered/Not Resolved]
  - Drug ineffective [Unknown]
  - Anxiety [Unknown]
  - Emotional distress [Unknown]
  - Pain [Unknown]
  - Product use complaint [Unknown]

NARRATIVE: CASE EVENT DATE: 20230101
